FAERS Safety Report 7296409-1 (Version None)
Quarter: 2011Q1

REPORT INFORMATION
  Report Type: 
  Country: None (occurrence: None)
  Receive Date: 20110216
  Receipt Date: 20110124
  Transmission Date: 20110831
  Serious: No
  Sender: FDA-Public Use
  Company Number: US-B.I. PHARMACEUTICALS,INC./RIDGEFIELD-2011-BP-02534BP

PATIENT
  Age: 79 Year
  Sex: Female

DRUGS (4)
  1. PRADAXA [Suspect]
     Indication: ATRIAL FIBRILLATION
     Dosage: 300 MG
     Route: 048
     Dates: start: 20110112
  2. METOPROLOL [Concomitant]
     Indication: CARDIAC DISORDER
     Route: 048
  3. LIPITOR [Concomitant]
     Indication: BLOOD CHOLESTEROL INCREASED
     Route: 048
  4. SYNTHROID [Concomitant]
     Indication: THYROIDECTOMY
     Route: 048

REACTIONS (4)
  - HAEMORRHAGE [None]
  - HAEMOPTYSIS [None]
  - EPISTAXIS [None]
  - BACK PAIN [None]
